APPROVED DRUG PRODUCT: ULTRACEF
Active Ingredient: CEFADROXIL/CEFADROXIL HEMIHYDRATE
Strength: EQ 1GM BASE
Dosage Form/Route: TABLET;ORAL
Application: A062390 | Product #001
Applicant: APOTHECON INC DIV BRISTOL MYERS SQUIBB
Approved: Jun 10, 1982 | RLD: No | RS: No | Type: DISCN